FAERS Safety Report 9558390 (Version 1)
Quarter: 2013Q3

REPORT INFORMATION
  Report Type: Spontaneous
  Country: IT (occurrence: IT)
  Receive Date: 20130926
  Receipt Date: 20130926
  Transmission Date: 20140515
  Serious: Yes (Other)
  Sender: FDA-Public Use
  Company Number: IT-MYLANLABS-2013S1020912

PATIENT
  Age: 29 Year
  Sex: Female
  Weight: 80 kg

DRUGS (12)
  1. METFORMIN [Suspect]
     Indication: HYPERGLYCAEMIA
     Route: 048
     Dates: start: 20130809
  2. RISPERDAL [Interacting]
     Indication: PSYCHOTIC DISORDER
     Route: 048
     Dates: start: 20100101
  3. LANSOX [Concomitant]
     Indication: PRODUCT USED FOR UNKNOWN INDICATION
     Dosage: 30 MG HARD CAPSULES
  4. TRILAFON /00023401/ [Concomitant]
     Indication: PRODUCT USED FOR UNKNOWN INDICATION
  5. LEPONEX [Concomitant]
     Indication: PRODUCT USED FOR UNKNOWN INDICATION
  6. ENTUMIN [Concomitant]
     Indication: PRODUCT USED FOR UNKNOWN INDICATION
  7. VATRAN [Concomitant]
     Indication: PRODUCT USED FOR UNKNOWN INDICATION
  8. HALCION [Concomitant]
     Indication: PRODUCT USED FOR UNKNOWN INDICATION
  9. TAVOR [Concomitant]
     Indication: PRODUCT USED FOR UNKNOWN INDICATION
  10. MOGADON [Concomitant]
     Indication: PRODUCT USED FOR UNKNOWN INDICATION
  11. FARGANESSE [Concomitant]
     Indication: PRODUCT USED FOR UNKNOWN INDICATION
  12. DIAZEPAM [Concomitant]
     Indication: PRODUCT USED FOR UNKNOWN INDICATION

REACTIONS (3)
  - Drug interaction [Unknown]
  - Drug ineffective [Unknown]
  - Mania [Unknown]
